FAERS Safety Report 12728609 (Version 1)
Quarter: 2016Q3

REPORT INFORMATION
  Report Type: Spontaneous
  Country: US (occurrence: US)
  Receive Date: 20160909
  Receipt Date: 20160909
  Transmission Date: 20161109
  Serious: Yes (Death)
  Sender: FDA-Public Use
  Company Number: None

PATIENT
  Sex: Female

DRUGS (1)
  1. RECUVYRA (FENTANYL) [Suspect]
     Active Substance: FENTANYL
     Route: 051
     Dates: start: 20160326

REACTIONS (6)
  - Overdose [None]
  - Coma [None]
  - Cardiac arrest [None]
  - Loss of consciousness [None]
  - Accidental exposure to product [None]
  - Respiratory arrest [None]
